FAERS Safety Report 19388040 (Version 1)
Quarter: 2021Q2

REPORT INFORMATION
  Report Type: Spontaneous
  Country: FR (occurrence: FR)
  Receive Date: 20210608
  Receipt Date: 20210608
  Transmission Date: 20210717
  Serious: Yes (Hospitalization, Disabling)
  Sender: FDA-Public Use
  Company Number: FR-TEVA-2021-FR-1919275

PATIENT
  Age: 34 Year
  Sex: Female
  Weight: 80 kg

DRUGS (16)
  1. FUMAFER 66 MG, COMPRIME PELLICULE [Suspect]
     Active Substance: FERROUS FUMARATE
     Indication: PRODUCT USED FOR UNKNOWN INDICATION
     Dosage: 3 DF
     Route: 048
     Dates: start: 20210212
  2. THERALENE 4 POUR CENT, SOLUTION BUVABLE EN GOUTTES [Suspect]
     Active Substance: TRIMEPRAZINE
     Indication: BIPOLAR DISORDER
     Dosage: IN DROPS, 20 MG
     Route: 048
     Dates: start: 20210324
  3. PANTOPRAZOLE [Suspect]
     Active Substance: PANTOPRAZOLE
     Indication: PRODUCT USED FOR UNKNOWN INDICATION
     Dosage: 80 MG
     Route: 048
     Dates: start: 20210211
  4. PARACETAMOL [Concomitant]
     Active Substance: ACETAMINOPHEN
  5. NICOPATCH [Concomitant]
     Active Substance: NICOTINE
  6. OXAZEPAM. [Concomitant]
     Active Substance: OXAZEPAM
  7. CHLORHYDRATE DE TRAMADOL [Suspect]
     Active Substance: TRAMADOL HYDROCHLORIDE
     Indication: PRODUCT USED FOR UNKNOWN INDICATION
     Dosage: 200 MG
     Route: 048
     Dates: start: 20210324
  8. CYAMEMAZINE [Suspect]
     Active Substance: CYAMEMAZINE
     Indication: BIPOLAR DISORDER
     Dosage: 175 MG
     Route: 048
  9. VITAMINE B12 [Concomitant]
     Active Substance: CYANOCOBALAMIN
  10. CETIRIZINE (DICHLORHYDRATE DE) [Concomitant]
     Active Substance: CETIRIZINE HYDROCHLORIDE
  11. TERALITHE [Concomitant]
     Active Substance: LITHIUM CARBONATE
     Indication: BIPOLAR DISORDER
     Dosage: SCORED TABLET, 1000 MG
     Route: 048
     Dates: start: 20210324
  12. QUETIAPINE. [Suspect]
     Active Substance: QUETIAPINE
     Indication: BIPOLAR DISORDER
     Dosage: 600 MG
     Route: 048
     Dates: start: 20210219
  13. AVLOCARDYL 40 MG, COMPRIME SECABLE [Concomitant]
     Dosage: SCORED TABLET
  14. SPECIAFOLDINE [Concomitant]
     Active Substance: FOLIC ACID
  15. NICOTINELL MENTHE 2 MG, COMPRIME A SUCER [Concomitant]
     Dosage: TO SUCK
  16. CHOLECALCIFEROL [Concomitant]
     Active Substance: CHOLECALCIFEROL

REACTIONS (1)
  - Megacolon [Recovered/Resolved with Sequelae]

NARRATIVE: CASE EVENT DATE: 20210330
